FAERS Safety Report 14874365 (Version 1)
Quarter: 2018Q2

REPORT INFORMATION
  Report Type: Spontaneous
  Country: US (occurrence: US)
  Receive Date: 20180424
  Receipt Date: 20180424
  Transmission Date: 20180711
  Serious: Yes (Hospitalization)
  Sender: FDA-Public Use
  Company Number: None

PATIENT
  Age: 27 Year
  Sex: Female

DRUGS (1)
  1. CANAKINUMAB. [Suspect]
     Active Substance: CANAKINUMAB
     Indication: AUTOINFLAMMATORY DISEASE
     Dates: start: 20170625, end: 20180126

REACTIONS (5)
  - Treatment failure [None]
  - Nausea [None]
  - Therapy change [None]
  - Swollen tongue [None]
  - Pruritus [None]

NARRATIVE: CASE EVENT DATE: 20170726
